FAERS Safety Report 6860115-5 (Version None)
Quarter: 2010Q3

REPORT INFORMATION
  Report Type: 
  Country: None (occurrence: None)
  Receive Date: 20100720
  Receipt Date: 20100714
  Transmission Date: 20110219
  Serious: Yes (Death, Hospitalization, Other)
  Sender: FDA-Public Use
  Company Number: ES-CELGENEUS-144-50794-10062189

PATIENT
  Age: 78 Year
  Sex: Male

DRUGS (12)
  1. VIDAZA [Suspect]
     Indication: MYELODYSPLASTIC SYNDROME
     Route: 065
     Dates: start: 20080602, end: 20090805
  2. NEUPOGEN [Concomitant]
     Indication: PRODUCT USED FOR UNKNOWN INDICATION
     Route: 065
     Dates: start: 20080602, end: 20090805
  3. RABEPRAZOLE SODIUM [Concomitant]
     Indication: GASTRIC ULCER
     Route: 065
  4. BENAZEPRIL HYDROCHLORIDE [Concomitant]
     Indication: HYPERTENSION
     Route: 065
  5. ATORVASTATIN [Concomitant]
     Route: 065
  6. FUROSEMIDE [Concomitant]
     Route: 065
  7. EPLERENONE [Concomitant]
     Route: 065
  8. ALPRAZOLAM [Concomitant]
     Indication: INSOMNIA
     Route: 065
  9. FINASTERIDE [Concomitant]
     Route: 065
  10. TERAZOSIN HCL [Concomitant]
     Route: 065
  11. NITRGLYCERIN TRANSDERMAL SYSTEM [Concomitant]
     Route: 065
  12. DARBEPOETIN ALFA [Concomitant]
     Indication: PRODUCT USED FOR UNKNOWN INDICATION
     Route: 065
     Dates: start: 20090805, end: 20090907

REACTIONS (3)
  - CARDIAC FAILURE [None]
  - EXTRADURAL HAEMATOMA [None]
  - GENERAL PHYSICAL HEALTH DETERIORATION [None]
